FAERS Safety Report 7725011-X (Version None)
Quarter: 2011Q3

REPORT INFORMATION
  Report Type: 
  Country: None (occurrence: None)
  Receive Date: 20110901
  Receipt Date: 20110826
  Transmission Date: 20111222
  Serious: Yes (Hospitalization, Other)
  Sender: FDA-Public Use
  Company Number: GB-ALLERGAN-1111634US

PATIENT
  Age: 65 Year
  Sex: Female
  Weight: 83 kg

DRUGS (8)
  1. ASPIRIN [Concomitant]
  2. SPIRONOLACTONE [Concomitant]
  3. BOTULINUM TOXIN TYPE A [Suspect]
     Indication: HYPERTONIC BLADDER
     Dosage: UNK
     Dates: start: 20080717, end: 20080717
  4. PLACEBO [Suspect]
     Indication: HYPERTONIC BLADDER
     Dosage: UNK
     Dates: start: 20080717, end: 20080717
  5. BOTULINUM TOXIN TYPE A [Suspect]
     Indication: HYPERTONIC BLADDER
     Dosage: 200 UNITS, SINGLE
     Route: 030
     Dates: start: 20090312, end: 20090312
  6. FUROSEMIDE [Concomitant]
  7. RAMIPRIL [Concomitant]
  8. BISOPROLOL FUMARATE [Concomitant]

REACTIONS (1)
  - CARDIOMYOPATHY [None]
